FAERS Safety Report 5573460-0 (Version None)
Quarter: 2007Q4

REPORT INFORMATION
  Report Type: 
  Country: None (occurrence: None)
  Receive Date: 20071226
  Receipt Date: 20071213
  Transmission Date: 20080405
  Serious: Yes (Other)
  Sender: FDA-Public Use
  Company Number: GB-JNJFOC-20071203784

PATIENT
  Sex: Male
  Weight: 84 kg

DRUGS (8)
  1. REMICADE [Suspect]
     Indication: RHEUMATOID ARTHRITIS
     Route: 042
  2. DIHYDROCODEINE [Concomitant]
  3. METHOTREXATE [Concomitant]
  4. DIDRONEL [Concomitant]
  5. PREDNISOLONE [Concomitant]
  6. FERROUS SULFATE TAB [Concomitant]
  7. FOLIC ACID [Concomitant]
  8. LANSOPRAZOLE [Concomitant]

REACTIONS (2)
  - LUNG INFECTION [None]
  - PULMONARY GRANULOMA [None]
